FAERS Safety Report 5961460-8 (Version None)
Quarter: 2008Q4

REPORT INFORMATION
  Report Type: 
  Country: None (occurrence: None)
  Receive Date: 20081121
  Receipt Date: 20081110
  Transmission Date: 20090506
  Serious: Yes (Other)
  Sender: FDA-Public Use
  Company Number: CA-JNJCH-2008054691

PATIENT

DRUGS (2)
  1. ACETYLSALICYLIC ACID SRT [Suspect]
     Indication: NERVOUS SYSTEM DISORDER
     Dosage: TEXT:81 MG DAILY
     Route: 065
  2. DIPYRIDAMOLE [Suspect]
     Indication: NERVOUS SYSTEM DISORDER
     Dosage: TEXT:25/200 MG DAILY
     Route: 065

REACTIONS (2)
  - CEREBROVASCULAR ACCIDENT [None]
  - CONDITION AGGRAVATED [None]
